FAERS Safety Report 16148906 (Version 1)
Quarter: 2019Q2

REPORT INFORMATION
  Report Type: Spontaneous
  Country: US (occurrence: US)
  Receive Date: 20190402
  Receipt Date: 20190402
  Transmission Date: 20190711
  Serious: Yes (Other)
  Sender: FDA-Public Use
  Company Number: US-SA-2019SA086767

PATIENT
  Age: 60 Year
  Sex: Female
  Weight: 78.93 kg

DRUGS (2)
  1. TAXOTERE [Suspect]
     Active Substance: DOCETAXEL
     Dosage: UNK, UNK
     Route: 065
  2. IBRANCE [Suspect]
     Active Substance: PALBOCICLIB
     Indication: BREAST CANCER METASTATIC
     Dosage: 75 MG, QD
     Route: 048
     Dates: start: 2016

REACTIONS (2)
  - Blood count abnormal [Unknown]
  - Cough [Unknown]

NARRATIVE: CASE EVENT DATE: 201902
